FAERS Safety Report 6133001-6 (Version None)
Quarter: 2009Q1

REPORT INFORMATION
  Report Type: 
  Country: None (occurrence: None)
  Receive Date: 20090326
  Receipt Date: 20090316
  Transmission Date: 20090719
  Serious: Yes (Other)
  Sender: FDA-Public Use
  Company Number: US-AMGEN-QUU330310

PATIENT
  Sex: Female
  Weight: 50.8 kg

DRUGS (2)
  1. ENBREL [Suspect]
     Indication: RHEUMATOID ARTHRITIS
     Route: 058
     Dates: start: 20000801, end: 20081219
  2. METHOTREXATE [Concomitant]
     Dates: start: 20050101, end: 20060101

REACTIONS (6)
  - FATIGUE [None]
  - LEUKOPENIA [None]
  - NAUSEA [None]
  - REFLUX OESOPHAGITIS [None]
  - RHEUMATOID ARTHRITIS [None]
  - SYSTEMIC LUPUS ERYTHEMATOSUS [None]
